FAERS Safety Report 5752548-5 (Version None)
Quarter: 2008Q2

REPORT INFORMATION
  Report Type: 
  Country: None (occurrence: None)
  Receive Date: 20080529
  Receipt Date: 20080523
  Transmission Date: 20081010
  Serious: Yes (Life-Threatening, Hospitalization)
  Sender: FDA-Public Use
  Company Number: PHHY2008FR08537

PATIENT
  Age: 20 Year
  Sex: Male

DRUGS (2)
  1. CLOZAPINE [Suspect]
     Indication: SCHIZOPHRENIA
     Dosage: UNK
     Route: 048
     Dates: start: 20071101, end: 20080331
  2. VALPROIC ACID [Suspect]
     Indication: SCHIZOPHRENIA
     Dosage: UNK
     Route: 048
     Dates: end: 20080411

REACTIONS (8)
  - ABNORMAL CLOTTING FACTOR [None]
  - AGRANULOCYTOSIS [None]
  - ANAEMIA [None]
  - HYPOPROTHROMBINAEMIA [None]
  - HYPOXIA [None]
  - LUNG DISORDER [None]
  - NEUTROPENIA [None]
  - PYREXIA [None]
